FAERS Safety Report 7767050-9 (Version None)
Quarter: 2011Q3

REPORT INFORMATION
  Report Type: 
  Country: None (occurrence: None)
  Receive Date: 20110922
  Receipt Date: 20101019
  Transmission Date: 20111222
  Serious: Yes (Other)
  Sender: FDA-Public Use
  Company Number: US-ASTRAZENECA-2010SE49474

PATIENT
  Age: 58 Year
  Sex: Male
  Weight: 72.6 kg

DRUGS (6)
  1. SEROQUEL [Suspect]
     Route: 048
  2. LUNESTA [Suspect]
     Indication: INSOMNIA
     Route: 048
     Dates: start: 20061201
  3. LUNESTA [Suspect]
     Route: 048
  4. LUNESTA [Suspect]
     Route: 048
  5. LUNESTA [Suspect]
     Route: 048
  6. LUNESTA [Suspect]
     Route: 048
     Dates: end: 20090401

REACTIONS (10)
  - MYALGIA [None]
  - MALAISE [None]
  - DEPENDENCE [None]
  - SUICIDE ATTEMPT [None]
  - SUICIDAL IDEATION [None]
  - DRUG INEFFECTIVE [None]
  - REBOUND EFFECT [None]
  - INSOMNIA [None]
  - DEPRESSION [None]
  - DRUG WITHDRAWAL SYNDROME [None]
